FAERS Safety Report 16239417 (Version 2)
Quarter: 2019Q2

REPORT INFORMATION
  Report Type: Spontaneous
  Country: US (occurrence: US)
  Receive Date: 20190425
  Receipt Date: 20190501
  Transmission Date: 20190711
  Serious: Yes (Other)
  Sender: FDA-Public Use
  Company Number: US-PFIZER INC-2019173071

PATIENT
  Age: 12 Year
  Sex: Female

DRUGS (3)
  1. METHOTREXATE SODIUM. [Suspect]
     Active Substance: METHOTREXATE SODIUM
     Indication: NON-HODGKIN^S LYMPHOMA
     Dosage: 12 MG, UNK (FIVE INJECTIONS)/PER SQUARE METER, WERE ADMINISTERED
     Route: 037
  2. METHOTREXATE SODIUM. [Suspect]
     Active Substance: METHOTREXATE SODIUM
     Dosage: 12 MG, UNK (A TOTAL DOSE OF 18.6 MG. WAS GIVEN EACH TIME IN CONCENTRATIONS OF 2.5 TO 5.0 MG. PER ML)
     Route: 037
  3. METHOTREXATE SODIUM. [Suspect]
     Active Substance: METHOTREXATE SODIUM
     Indication: ACUTE LEUKAEMIA
     Dosage: 12/M2(18.6) WITH A TOTAL DOSE OF 93 MG
     Route: 037

REACTIONS (2)
  - Sensory loss [Unknown]
  - Paraplegia [Unknown]
